FAERS Safety Report 17689769 (Version 2)
Quarter: 2022Q4

REPORT INFORMATION
  Report Type: Spontaneous
  Country: US (occurrence: None)
  Receive Date: 20200421
  Receipt Date: 20221229
  Transmission Date: 20230113
  Serious: Yes (Other)
  Sender: FDA-Public Use
  Company Number: 2020SE50900

PATIENT
  Sex: Female
  Weight: 64 kg

DRUGS (45)
  1. OMEPRAZOLE [Suspect]
     Active Substance: OMEPRAZOLE
     Indication: Gastrooesophageal reflux disease
     Dosage: GENERIC
     Route: 065
     Dates: start: 20130816, end: 20130830
  2. OMEPRAZOLE [Suspect]
     Active Substance: OMEPRAZOLE
     Indication: Gastrooesophageal reflux disease
     Dosage: GENERIC
     Route: 048
     Dates: start: 20130816
  3. PREVACID [Suspect]
     Active Substance: LANSOPRAZOLE
     Indication: Gastrooesophageal reflux disease
     Route: 065
     Dates: start: 200001, end: 201406
  4. PREVACID [Suspect]
     Active Substance: LANSOPRAZOLE
     Indication: Gastrooesophageal reflux disease
     Dosage: LANSPRAZOLE
     Route: 065
     Dates: start: 20090608, end: 20101122
  5. PREVACID [Suspect]
     Active Substance: LANSOPRAZOLE
     Indication: Gastrooesophageal reflux disease
     Dosage: LANSPRAZOLE
     Route: 065
     Dates: start: 20130807, end: 20141202
  6. PREVACID [Suspect]
     Active Substance: LANSOPRAZOLE
     Indication: Gastrooesophageal reflux disease
     Route: 048
     Dates: start: 20090608
  7. AVINZA [Concomitant]
     Active Substance: MORPHINE SULFATE
     Indication: Pain
     Dates: start: 20080603, end: 20110722
  8. ATORVASTATIN [Concomitant]
     Active Substance: ATORVASTATIN
     Indication: Blood cholesterol increased
     Dates: start: 20130807, end: 20150311
  9. DICYCLOMINE [Concomitant]
     Active Substance: DICYCLOMINE HYDROCHLORIDE
     Indication: Abdominal pain upper
     Dates: start: 20100701, end: 20150311
  10. LIPITOR [Concomitant]
     Active Substance: ATORVASTATIN CALCIUM
     Indication: Blood cholesterol increased
     Dates: start: 20100129, end: 20100701
  11. HUMULIN NOS [Concomitant]
     Active Substance: INSULIN HUMAN
     Indication: Diabetes mellitus
     Dates: start: 20100608, end: 20100730
  12. ONDANSETRON [Concomitant]
     Active Substance: ONDANSETRON
     Indication: Nausea
     Dates: start: 20140913, end: 20150523
  13. ONDANSETRON [Concomitant]
     Active Substance: ONDANSETRON
     Indication: Vomiting
     Dates: start: 20140913, end: 20150523
  14. VITAMIN D [Concomitant]
     Active Substance: VITAMIN D NOS
     Indication: Supplementation therapy
     Dates: start: 20150327, end: 20150429
  15. TUMS [Concomitant]
     Active Substance: CALCIUM CARBONATE
     Dosage: OTC-2-4 TABLETS AS NEEDED
     Dates: start: 2016
  16. MELATONIN [Concomitant]
     Active Substance: MELATONIN
  17. AMITRIPTYLINE [Concomitant]
     Active Substance: AMITRIPTYLINE
  18. METAXALONE [Concomitant]
     Active Substance: METAXALONE
  19. LEVOTHYROXINE [Concomitant]
     Active Substance: LEVOTHYROXINE
  20. LORAZEPAM [Concomitant]
     Active Substance: LORAZEPAM
  21. MOVANTIK [Concomitant]
     Active Substance: NALOXEGOL OXALATE
  22. SUCRALFATE [Concomitant]
     Active Substance: SUCRALFATE
  23. CIPROFLOXACIN [Concomitant]
     Active Substance: CIPROFLOXACIN
  24. GLIPIZIDE [Concomitant]
     Active Substance: GLIPIZIDE
  25. LANTUS [Concomitant]
     Active Substance: INSULIN GLARGINE
  26. VALACYCLOVIR [Concomitant]
     Active Substance: VALACYCLOVIR HYDROCHLORIDE
  27. TOPIRAMATE [Concomitant]
     Active Substance: TOPIRAMATE
  28. CARVEDILOL [Concomitant]
     Active Substance: CARVEDILOL
  29. FUROSEMIDE [Concomitant]
     Active Substance: FUROSEMIDE
  30. TRIAMETERENE [Concomitant]
  31. PREDNISONE [Concomitant]
     Active Substance: PREDNISONE
  32. BENZONATATE [Concomitant]
     Active Substance: BENZONATATE
  33. MELOXICAM [Concomitant]
     Active Substance: MELOXICAM
  34. GABAPENTIN [Concomitant]
     Active Substance: GABAPENTIN
  35. AZITHROMYCIN [Concomitant]
     Active Substance: AZITHROMYCIN
  36. ABILIFY [Concomitant]
     Active Substance: ARIPIPRAZOLE
  37. PROMETHAZINE [Concomitant]
     Active Substance: PROMETHAZINE HYDROCHLORIDE
  38. AMOXICILLIN KCLAV [Concomitant]
  39. BUPRENORPHINE [Concomitant]
     Active Substance: BUPRENORPHINE
  40. EMPAGLIFLOZIN [Concomitant]
     Active Substance: EMPAGLIFLOZIN
  41. QUETIAPINE [Concomitant]
     Active Substance: QUETIAPINE
  42. TERBINAFINE [Concomitant]
     Active Substance: TERBINAFINE
  43. VALSARTAN [Concomitant]
     Active Substance: VALSARTAN
  44. CODEINE PHOSPHATE/BUTALBITAL/PARACETAMOL/CAFFEINE [Concomitant]
  45. ISOPROPYL ALCOHOL [Concomitant]
     Active Substance: ISOPROPYL ALCOHOL

REACTIONS (3)
  - Chronic kidney disease [Not Recovered/Not Resolved]
  - Acute kidney injury [Unknown]
  - Renal failure [Unknown]
